FAERS Safety Report 4472621-1 (Version None)
Quarter: 2004Q4

REPORT INFORMATION
  Report Type: 
  Country: None (occurrence: None)
  Receive Date: 20041008
  Receipt Date: 20040924
  Transmission Date: 20050328
  Serious: Yes (Hospitalization)
  Sender: FDA-Public Use
  Company Number: 2004SE05323

PATIENT
  Age: 68 Year
  Sex: Female
  Weight: 70 kg

DRUGS (7)
  1. AMIAS [Suspect]
     Indication: HYPERTENSION
     Dosage: DAILY DOSE: 2 MG
     Dates: start: 20040517, end: 20040614
  2. SALMETEROL [Concomitant]
  3. FLUTICASONE PROPIONATE [Concomitant]
  4. ATORVASTATIN CALCIUM [Concomitant]
  5. DIGOXIN [Concomitant]
  6. CLOPIDOGREL [Concomitant]
  7. AMLODIPINE [Concomitant]

REACTIONS (2)
  - DERMATITIS BULLOUS [None]
  - VASCULITIC RASH [None]
